FAERS Safety Report 7259735-8 (Version None)
Quarter: 2011Q1

REPORT INFORMATION
  Report Type: 
  Country: None (occurrence: None)
  Receive Date: 20110130
  Receipt Date: 20100929
  Transmission Date: 20110831
  Serious: No
  Sender: FDA-Public Use
  Company Number: US-ABBOTT-10P-163-0661784-00

PATIENT
  Sex: Male

DRUGS (9)
  1. OXYCODONE [Concomitant]
     Indication: PAIN
     Dosage: EVERY 4 HOURS AS NEEDED
  2. HUMIRA [Suspect]
     Indication: CROHN'S DISEASE
     Dosage: FOR TWO WEEKS
     Dates: start: 20100729
  3. CHILDRENS BENADRYL FAST-DISSOLVE [Concomitant]
     Indication: PRURITUS
  4. ATARAX [Concomitant]
     Indication: PRODUCT USED FOR UNKNOWN INDICATION
  5. HUMIRA [Suspect]
     Dates: start: 20100801
  6. PREDNISONE [Concomitant]
     Indication: PRODUCT USED FOR UNKNOWN INDICATION
  7. TPN ELECTROLYTES IN PLASTIC CONTAINER [Concomitant]
     Indication: PRODUCT USED FOR UNKNOWN INDICATION
  8. ELAVIL [Concomitant]
     Indication: PRODUCT USED FOR UNKNOWN INDICATION
  9. IZOFRAN [Concomitant]
     Indication: PRODUCT USED FOR UNKNOWN INDICATION

REACTIONS (2)
  - VARICELLA [None]
  - HERPES ZOSTER [None]
